FAERS Safety Report 16644105 (Version 1)
Quarter: 2019Q3

REPORT INFORMATION
  Report Type: Spontaneous
  Country: US (occurrence: US)
  Receive Date: 20190729
  Receipt Date: 20190729
  Transmission Date: 20191004
  Serious: No
  Sender: FDA-Public Use
  Company Number: US-BAYER-2019-139428

PATIENT
  Age: 60 Year
  Sex: Male
  Weight: 98 kg

DRUGS (1)
  1. ALEVE [Suspect]
     Active Substance: NAPROXEN SODIUM
     Indication: PAIN
     Dosage: 1 DF, QD
     Route: 048
     Dates: start: 201907

REACTIONS (2)
  - Product packaging quantity issue [None]
  - Expired product administered [Unknown]

NARRATIVE: CASE EVENT DATE: 201907
